FAERS Safety Report 12245454 (Version 2)
Quarter: 2016Q2

REPORT INFORMATION
  Report Type: Spontaneous
  Country: US (occurrence: US)
  Receive Date: 20160407
  Receipt Date: 20160530
  Transmission Date: 20160815
  Serious: No
  Sender: FDA-Public Use
  Company Number: US-BIOGEN-2016BI00213535

PATIENT
  Sex: Female

DRUGS (1)
  1. TYSABRI [Suspect]
     Active Substance: NATALIZUMAB
     Indication: MULTIPLE SCLEROSIS
     Route: 065
     Dates: start: 20151028

REACTIONS (7)
  - Dental care [Unknown]
  - Tooth extraction [Recovered/Resolved]
  - Blood sodium decreased [Recovered/Resolved]
  - Migraine [Not Recovered/Not Resolved]
  - Drug dose omission [Unknown]
  - Malaise [Recovered/Resolved]
  - Memory impairment [Recovered/Resolved]
